FAERS Safety Report 24435742 (Version 1)
Quarter: 2024Q4

REPORT INFORMATION
  Report Type: Spontaneous
  Country: FR (occurrence: FR)
  Receive Date: 20241015
  Receipt Date: 20241015
  Transmission Date: 20250114
  Serious: Yes (Hospitalization)
  Sender: ALEXION PHARMACEUTICALS
  Company Number: FR-AstraZeneca-CH-00716972AM

PATIENT
  Age: 59 Year

DRUGS (28)
  1. TICAGRELOR [Suspect]
     Active Substance: TICAGRELOR
     Indication: Myocardial infarction
  2. TICAGRELOR [Suspect]
     Active Substance: TICAGRELOR
  3. TICAGRELOR [Suspect]
     Active Substance: TICAGRELOR
  4. TICAGRELOR [Suspect]
     Active Substance: TICAGRELOR
  5. CRESTOR [Concomitant]
     Active Substance: ROSUVASTATIN CALCIUM
     Route: 065
  6. CRESTOR [Concomitant]
     Active Substance: ROSUVASTATIN CALCIUM
  7. CRESTOR [Concomitant]
     Active Substance: ROSUVASTATIN CALCIUM
     Route: 065
  8. CRESTOR [Concomitant]
     Active Substance: ROSUVASTATIN CALCIUM
  9. EUPANTOL [Concomitant]
     Active Substance: PANTOPRAZOLE SODIUM
     Route: 065
  10. EUPANTOL [Concomitant]
     Active Substance: PANTOPRAZOLE SODIUM
  11. EUPANTOL [Concomitant]
     Active Substance: PANTOPRAZOLE SODIUM
     Route: 065
  12. EUPANTOL [Concomitant]
     Active Substance: PANTOPRAZOLE SODIUM
  13. METFORMIN HYDROCHLORIDE [Concomitant]
     Active Substance: METFORMIN HYDROCHLORIDE
     Route: 065
  14. METFORMIN HYDROCHLORIDE [Concomitant]
     Active Substance: METFORMIN HYDROCHLORIDE
  15. METFORMIN HYDROCHLORIDE [Concomitant]
     Active Substance: METFORMIN HYDROCHLORIDE
     Route: 065
  16. METFORMIN HYDROCHLORIDE [Concomitant]
     Active Substance: METFORMIN HYDROCHLORIDE
  17. TRAMADOL [Concomitant]
     Active Substance: TRAMADOL
     Route: 065
  18. TRAMADOL [Concomitant]
     Active Substance: TRAMADOL
  19. TRAMADOL [Concomitant]
     Active Substance: TRAMADOL
     Route: 065
  20. TRAMADOL [Concomitant]
     Active Substance: TRAMADOL
  21. VOGALENE [Concomitant]
     Active Substance: METOPIMAZINE
     Route: 065
  22. VOGALENE [Concomitant]
     Active Substance: METOPIMAZINE
  23. VOGALENE [Concomitant]
     Active Substance: METOPIMAZINE
     Route: 065
  24. VOGALENE [Concomitant]
     Active Substance: METOPIMAZINE
  25. XANAX [Concomitant]
     Active Substance: ALPRAZOLAM
     Route: 065
  26. XANAX [Concomitant]
     Active Substance: ALPRAZOLAM
  27. XANAX [Concomitant]
     Active Substance: ALPRAZOLAM
     Route: 065
  28. XANAX [Concomitant]
     Active Substance: ALPRAZOLAM

REACTIONS (3)
  - COVID-19 [Unknown]
  - Dyspnoea [Unknown]
  - Eye haemorrhage [Unknown]
